FAERS Safety Report 4617897-2 (Version None)
Quarter: 2005Q1

REPORT INFORMATION
  Report Type: 
  Country: None (occurrence: None)
  Receive Date: 20050322
  Receipt Date: 20050314
  Transmission Date: 20050727
  Serious: Yes (Death, Hospitalization)
  Sender: FDA-Public Use
  Company Number: HQWYE101614MAR05

PATIENT
  Age: 55 Year
  Sex: Male

DRUGS (8)
  1. EUPANTOL (PANTOPRAZOLE, TABLET, DELAYED RELEASE) [Suspect]
     Indication: OESOPHAGEAL ULCER
     Dosage: 40 MG 1X PER 1 DAY ORAL
     Route: 048
     Dates: start: 20041214, end: 20050114
  2. AMOXICILLIN [Suspect]
     Indication: ENDOCARDITIS
     Dosage: 2 G 6X PER 1 DAY ORAL
     Route: 048
     Dates: start: 20041222, end: 20050114
  3. GANCICLOVIR [Suspect]
     Indication: CYTOMEGALOVIRUS INFECTION
     Dosage: 160 MG 1X PER 1 DAY INTRAVENOUS
     Route: 042
     Dates: start: 20041214, end: 20050114
  4. FOSCAVIR [Suspect]
     Indication: CYTOMEGALOVIRUS INFECTION
     Dosage: INTRAVENOUS
     Route: 042
     Dates: start: 20041230, end: 20050114
  5. GENTAMICIN [Suspect]
     Indication: ENDOCARDITIS
     Dosage: INTRAVENOUS
     Route: 042
     Dates: start: 20041222, end: 20050114
  6. VFEND [Suspect]
     Indication: BRONCHOPULMONARY ASPERGILLOSIS
     Dosage: ORAL
     Route: 048
     Dates: start: 20041230, end: 20050104
  7. BACTRIM [Concomitant]
  8. PREDNISONE TAB [Concomitant]

REACTIONS (8)
  - BRONCHOPULMONARY ASPERGILLOSIS [None]
  - CHOLESTASIS [None]
  - CONDITION AGGRAVATED [None]
  - CYTOMEGALOVIRUS INFECTION [None]
  - ENDOCARDITIS BACTERIAL [None]
  - FEBRILE BONE MARROW APLASIA [None]
  - MULTI-ORGAN FAILURE [None]
  - TOXIC EPIDERMAL NECROLYSIS [None]
